FAERS Safety Report 10103025 (Version 2)
Quarter: 2014Q2

REPORT INFORMATION
  Report Type: Spontaneous
  Country: US (occurrence: US)
  Receive Date: 20140424
  Receipt Date: 20140424
  Transmission Date: 20141212
  Serious: Yes (Hospitalization)
  Sender: FDA-Public Use
  Company Number: US-BRISTOL-MYERS SQUIBB COMPANY-20078986

PATIENT
  Age: 70 Year
  Sex: Male
  Weight: 84.35 kg

DRUGS (10)
  1. ELIQUIS [Suspect]
     Indication: ATRIAL FIBRILLATION
     Route: 048
     Dates: start: 20130506, end: 20130626
  2. PLAVIX [Suspect]
     Indication: PLATELET AGGREGATION
     Route: 048
     Dates: start: 20110225, end: 20130626
  3. MVI [Concomitant]
  4. VIAGRA [Concomitant]
  5. LISINOPRIL [Concomitant]
     Dosage: 1 DF:2.5 UNIT NOS
  6. NITRO-SPRAY [Concomitant]
  7. ATORVASTATIN [Concomitant]
  8. SOTALOL [Concomitant]
     Dosage: SOTALOL 80?1 DF:2PILLS/DAY
  9. LANSOPRAZOLE [Concomitant]
  10. FISH OIL [Concomitant]

REACTIONS (1)
  - Subarachnoid haemorrhage [Unknown]
